FAERS Safety Report 5095211-9 (Version None)
Quarter: 2006Q3

REPORT INFORMATION
  Report Type: 
  Country: None (occurrence: None)
  Receive Date: 20060901
  Receipt Date: 20060824
  Transmission Date: 20061208
  Serious: Yes (Other)
  Sender: FDA-Public Use
  Company Number: 459997

PATIENT
  Age: 55 Year
  Sex: Male

DRUGS (6)
  1. CARVEDILOL [Suspect]
     Indication: MYOCARDIAL INFARCTION
     Dosage: 2.5MG PER DAY
     Route: 048
     Dates: start: 20060712, end: 20060727
  2. PANALDINE [Suspect]
     Indication: THROMBOSIS
     Dosage: 100MG TWICE PER DAY
     Route: 048
     Dates: start: 20060710
  3. OMEPRAZOLE [Suspect]
     Indication: GASTRITIS
     Route: 048
     Dates: start: 20060710, end: 20060802
  4. LIPITOR [Suspect]
     Dosage: 5MG PER DAY
     Route: 048
     Dates: start: 20060712, end: 20060727
  5. NU-LOTAN [Suspect]
     Indication: MYOCARDIAL INFARCTION
     Dosage: 12.5MG PER DAY
     Route: 048
     Dates: start: 20060712, end: 20060727
  6. 8-HOUR BAYER [Suspect]
     Indication: MYOCARDIAL INFARCTION
     Dosage: 100MG PER DAY
     Route: 048

REACTIONS (3)
  - ADVERSE DRUG REACTION [None]
  - PLATELET COUNT INCREASED [None]
  - STENT OCCLUSION [None]
